FAERS Safety Report 22905404 (Version 2)
Quarter: 2023Q4

REPORT INFORMATION
  Report Type: Spontaneous
  Country: FR (occurrence: FR)
  Receive Date: 20230905
  Receipt Date: 20231011
  Transmission Date: 20240110
  Serious: Yes (Hospitalization, Other)
  Sender: FDA-Public Use
  Company Number: FR-AFSSAPS-TS2023001089

PATIENT
  Age: 87 Year
  Sex: Male
  Weight: 80 kg

DRUGS (2)
  1. AMOXICILLIN [Interacting]
     Active Substance: AMOXICILLIN
     Indication: Erysipelas
     Dosage: 1 GRAM, 3 TIMES A DAY
     Route: 048
     Dates: start: 202307, end: 202307
  2. METHOTREXATE [Interacting]
     Active Substance: METHOTREXATE
     Indication: Polymyalgia rheumatica
     Dosage: 10 MILLIGRAM, EVERY WEEK
     Route: 048
     Dates: start: 20230123, end: 20230724

REACTIONS (2)
  - Pancytopenia [Recovered/Resolved]
  - Drug interaction [Recovered/Resolved]

NARRATIVE: CASE EVENT DATE: 20230701
